FAERS Safety Report 6739975-4 (Version None)
Quarter: 2010Q2

REPORT INFORMATION
  Report Type: 
  Country: None (occurrence: None)
  Receive Date: 20100525
  Receipt Date: 20100518
  Transmission Date: 20101027
  Serious: Yes (Hospitalization)
  Sender: FDA-Public Use
  Company Number: IT-ELI_LILLY_AND_COMPANY-IT201005004319

PATIENT
  Sex: Female
  Weight: 82 kg

DRUGS (5)
  1. GEMCITABINE HCL [Suspect]
     Indication: BREAST CANCER METASTATIC
     Dosage: 1000 MG/M2, DAYS 1 + 8 EVERY 3 WEEKS
     Route: 042
     Dates: start: 20100326
  2. VINFLUNINE [Suspect]
     Indication: BREAST CANCER METASTATIC
     Dosage: 320 MG/M2, DAY 1 OF EACH CYCLE
     Route: 042
     Dates: start: 20100326
  3. LEVOTHYROXINE SODIUM [Concomitant]
     Dates: start: 20000101
  4. DELORAZEPAM [Concomitant]
     Dates: start: 20100403
  5. ZOFRAN [Concomitant]
     Dates: start: 20100326

REACTIONS (2)
  - PLEURAL EFFUSION [None]
  - PULMONARY EMBOLISM [None]
